FAERS Safety Report 5709175-5 (Version None)
Quarter: 2008Q2

REPORT INFORMATION
  Report Type: 
  Country: None (occurrence: None)
  Receive Date: 20080418
  Receipt Date: 20080404
  Transmission Date: 20081010
  Serious: Yes (Life-Threatening, Hospitalization, Other)
  Sender: FDA-Public Use
  Company Number: US-AMGEN-KDL267221

PATIENT
  Sex: Female
  Weight: 62.5 kg

DRUGS (25)
  1. EPOGEN [Suspect]
     Indication: DIALYSIS
     Route: 042
     Dates: start: 20070403
  2. EPOGEN [Suspect]
  3. VENOFER [Concomitant]
  4. HEPARIN [Concomitant]
  5. SODIUM BICARBONATE [Concomitant]
     Route: 048
  6. ZANTAC [Concomitant]
     Route: 048
  7. ALBUTEROL [Concomitant]
     Route: 055
  8. ATROVENT [Concomitant]
     Route: 055
  9. NEPHRO-VITE [Concomitant]
     Route: 048
  10. SULAR [Concomitant]
     Route: 048
  11. LASIX [Concomitant]
     Route: 048
  12. ENALAPRIL MALEATE [Concomitant]
     Route: 048
  13. CLARITIN [Concomitant]
     Route: 048
  14. LIPITOR [Concomitant]
     Route: 048
  15. DOXAZOSIN [Concomitant]
     Route: 048
  16. SENSIPAR [Concomitant]
     Indication: HYPERPARATHYROIDISM SECONDARY
  17. MEGACE [Concomitant]
  18. REGLAN [Concomitant]
     Route: 048
  19. PRILOSEC [Concomitant]
     Route: 048
  20. PROTONIX [Concomitant]
     Route: 048
  21. CENTRUM SILVER [Concomitant]
  22. HYDRALAZINE HCL [Concomitant]
  23. DOXAZOSIN [Concomitant]
     Route: 048
  24. TUMS [Concomitant]
  25. FOSRENOL [Concomitant]

REACTIONS (7)
  - ANAEMIA [None]
  - CHRONIC OBSTRUCTIVE PULMONARY DISEASE [None]
  - CORONARY ARTERY OCCLUSION [None]
  - GASTRITIS [None]
  - GASTROINTESTINAL HAEMORRHAGE [None]
  - MALNUTRITION [None]
  - POLYP [None]
